FAERS Safety Report 7778971-5 (Version None)
Quarter: 2011Q3

REPORT INFORMATION
  Report Type: 
  Country: None (occurrence: None)
  Receive Date: 20110926
  Receipt Date: 20110912
  Transmission Date: 20111222
  Serious: Yes (Other)
  Sender: FDA-Public Use
  Company Number: US-ELI_LILLY_AND_COMPANY-US201109005517

PATIENT

DRUGS (4)
  1. CARBOPLATIN [Concomitant]
  2. FOLIC ACID [Concomitant]
  3. PEMETREXED [Suspect]
     Indication: ADENOCARCINOMA
     Dosage: 500 MG/M2, UNKNOWN
  4. VIT B12 [Concomitant]

REACTIONS (2)
  - NEUTROPENIA [None]
  - DEPRESSION [None]
